FAERS Safety Report 8207009-0 (Version None)
Quarter: 2012Q1

REPORT INFORMATION
  Report Type: 
  Country: None (occurrence: None)
  Receive Date: 20120312
  Receipt Date: 20120305
  Transmission Date: 20120608
  Serious: Yes (Hospitalization)
  Sender: FDA-Public Use
  Company Number: 216966

PATIENT

DRUGS (1)
  1. INNOHEP [Suspect]
     Indication: DIALYSIS
     Dosage: (0.35 ML)

REACTIONS (2)
  - THROMBOSIS [None]
  - PROCEDURAL COMPLICATION [None]
